FAERS Safety Report 18241938 (Version 1)
Quarter: 2020Q3

REPORT INFORMATION
  Report Type: Spontaneous
  Country: US (occurrence: US)
  Receive Date: 20200905
  Receipt Date: 20200905
  Transmission Date: 20201103
  Serious: Yes (Hospitalization)
  Sender: FDA-Public Use
  Company Number: None

PATIENT
  Age: 61 Year
  Sex: Female
  Weight: 84 kg

DRUGS (1)
  1. CISPLATIN. [Suspect]
     Active Substance: CISPLATIN
     Dates: end: 20200818

REACTIONS (15)
  - Sepsis [None]
  - Dyspnoea [None]
  - Thrombocytopenia [None]
  - Neutropenia [None]
  - Pyrexia [None]
  - Blood lactic acid increased [None]
  - Asthenia [None]
  - Procalcitonin increased [None]
  - Nausea [None]
  - Vomiting [None]
  - Dehydration [None]
  - Congenital megaureter [None]
  - Abdominal pain [None]
  - Pyelonephritis [None]
  - Blood creatinine increased [None]

NARRATIVE: CASE EVENT DATE: 20200825
